FAERS Safety Report 7071370-3 (Version None)
Quarter: 2010Q4

REPORT INFORMATION
  Report Type: 
  Country: None (occurrence: None)
  Receive Date: 20101029
  Receipt Date: 20101019
  Transmission Date: 20110411
  Serious: Yes (Other)
  Sender: FDA-Public Use
  Company Number: JP-JNJFOC-20101005274

PATIENT
  Sex: Female
  Weight: 17 kg

DRUGS (14)
  1. REMICADE [Suspect]
     Indication: BEHCET'S SYNDROME
     Route: 042
  2. REMICADE [Suspect]
     Route: 042
  3. REMICADE [Suspect]
     Route: 042
  4. REMICADE [Suspect]
     Route: 042
  5. REMICADE [Suspect]
     Route: 042
  6. REMICADE [Suspect]
     Dosage: TOTAL OF 4 DOSES 1 YEAR EARLIER
     Route: 042
  7. PREDNISOLONE [Concomitant]
     Route: 048
  8. GASPORT [Concomitant]
     Route: 048
  9. PROGRAF [Concomitant]
     Route: 048
  10. BREDININ [Concomitant]
     Route: 048
  11. MIYA BM [Concomitant]
     Route: 048
  12. ALLELOCK [Concomitant]
     Route: 048
  13. MIZORIBINE [Concomitant]
     Route: 048
  14. POLYGAM S/D [Concomitant]
     Route: 058

REACTIONS (6)
  - ANAPHYLACTIC REACTION [None]
  - CYANOSIS [None]
  - INFUSION RELATED REACTION [None]
  - MUSCULAR WEAKNESS [None]
  - OXYGEN SATURATION DECREASED [None]
  - THROAT IRRITATION [None]
